FAERS Safety Report 17877336 (Version 1)
Quarter: 2020Q2

REPORT INFORMATION
  Report Type: Spontaneous
  Country: US (occurrence: US)
  Receive Date: 20200609
  Receipt Date: 20200609
  Transmission Date: 20200714
  Serious: No
  Sender: FDA-Public Use
  Company Number: US-ASTRAZENECA-2020SE67145

PATIENT
  Sex: Female

DRUGS (1)
  1. FASENRA [Suspect]
     Active Substance: BENRALIZUMAB
     Indication: ASTHMA
     Dosage: EVERY FIRST WEEK FOR FIRST 3 DOSES AND THEN EVERY 8 WEEKS
     Route: 058
     Dates: start: 20200129

REACTIONS (1)
  - Trichuriasis [Unknown]
